FAERS Safety Report 14197107 (Version 6)
Quarter: 2018Q1

REPORT INFORMATION
  Report Type: Spontaneous
  Country: US (occurrence: US)
  Receive Date: 20171116
  Receipt Date: 20180130
  Transmission Date: 20180508
  Serious: Yes (Hospitalization)
  Sender: FDA-Public Use
  Company Number: US-ACTELION-A-NJ2017-162449

PATIENT
  Age: 24 Year
  Sex: Female
  Weight: 56.24 kg

DRUGS (4)
  1. VELETRI [Suspect]
     Active Substance: EPOPROSTENOL
     Indication: PULMONARY HYPERTENSION
     Dosage: 26.97 NG/KG, PER MIN
     Route: 042
  2. SILDENAFIL CITRATE. [Concomitant]
     Active Substance: SILDENAFIL CITRATE
  3. OPSUMIT [Suspect]
     Active Substance: MACITENTAN
     Indication: PULMONARY HYPERTENSION
     Dosage: 10 MG, QD
     Route: 048
  4. ELIQUIS [Concomitant]
     Active Substance: APIXABAN

REACTIONS (10)
  - Catheter management [Unknown]
  - Treatment noncompliance [Unknown]
  - Catheter site erythema [Unknown]
  - Vomiting [Unknown]
  - Catheter site infection [Unknown]
  - Sepsis [Unknown]
  - Central venous catheterisation [Unknown]
  - Diarrhoea [Unknown]
  - Anger [Unknown]
  - Device related infection [Unknown]

NARRATIVE: CASE EVENT DATE: 20180105
